FAERS Safety Report 8834818 (Version 1)
Quarter: 2012Q4

REPORT INFORMATION
  Report Type: Report from Study
  Country: JP (occurrence: JP)
  Receive Date: 20121010
  Receipt Date: 20121010
  Transmission Date: 20130627
  Serious: Yes (Hospitalization)
  Sender: FDA-Public Use
  Company Number: JP-GLAXOSMITHKLINE-B0416962A

PATIENT
  Age: 11 Year
  Sex: Female
  Weight: 32 kg

DRUGS (28)
  1. ALKERAN [Suspect]
     Indication: STEM CELL TRANSPLANT
     Dosage: 84MG Per day
     Route: 042
     Dates: start: 20040625, end: 20040626
  2. ALKERAN [Suspect]
     Indication: STEM CELL TRANSPLANT
     Dosage: 84MG Per day
     Route: 042
     Dates: start: 20040702, end: 20040703
  3. THIOTEPA [Concomitant]
     Indication: STEM CELL TRANSPLANT
     Dosage: 240MG Per day
     Dates: start: 20040625, end: 20040626
  4. THIOTEPA [Concomitant]
     Indication: STEM CELL TRANSPLANT
     Dosage: 240MG Per day
     Dates: start: 20040702, end: 20040703
  5. NEUTROGIN [Concomitant]
     Dates: start: 20040707, end: 20040714
  6. KYTRIL [Concomitant]
     Dosage: 1.5MG Per day
     Route: 042
     Dates: start: 20040625, end: 20040628
  7. KYTRIL [Concomitant]
     Dosage: 1.5MG Per day
     Route: 042
     Dates: start: 20040702, end: 20040704
  8. KYTRIL [Concomitant]
     Dosage: 1.5MG Per day
     Route: 042
     Dates: start: 20040706, end: 20040706
  9. DIAMOX [Concomitant]
     Dosage: 500MG Per day
     Dates: start: 20040625, end: 20040727
  10. DIAMOX [Concomitant]
     Dosage: 500MG Per day
     Dates: start: 20040701, end: 20040704
  11. POLYMYXIN-B SULFATE [Concomitant]
     Dosage: 1.5IU3 Per day
     Route: 048
     Dates: start: 20040625, end: 20040715
  12. BAKTAR [Concomitant]
     Dosage: 2IUAX Per day
     Route: 048
     Dates: start: 20040625
  13. FUNGIZONE [Concomitant]
     Dosage: 6ML Per day
     Route: 048
     Dates: start: 20040625, end: 20040715
  14. DEPAKENE [Concomitant]
     Dosage: 4IUAX Per day
     Route: 048
     Dates: start: 20040625, end: 20040627
  15. DEPAKENE [Concomitant]
     Dosage: 2IUAX Per day
     Route: 048
     Dates: start: 20040628, end: 20040704
  16. SOLU-CORTEF [Concomitant]
     Dosage: 100MG Per day
     Dates: start: 20040628, end: 20040628
  17. SOLU-CORTEF [Concomitant]
     Dosage: 100MG Per day
     Dates: start: 20040701, end: 20040702
  18. SOLU-CORTEF [Concomitant]
     Dosage: 100MG Per day
     Dates: start: 20040706, end: 20040706
  19. VENILON [Concomitant]
     Dosage: 2.5G Per day
     Route: 042
     Dates: start: 20040629, end: 20040629
  20. VENILON [Concomitant]
     Dosage: 2.5G Per day
     Route: 042
     Dates: start: 20040705, end: 20040705
  21. HYDROXYZINE [Concomitant]
     Dosage: 30MG Per day
     Dates: start: 20040706, end: 20040706
  22. CARBENIN [Concomitant]
     Dosage: 1.5G Per day
     Route: 042
     Dates: start: 20040705, end: 20040718
  23. AMIKACIN SULFATE [Concomitant]
     Dosage: .4G Per day
     Dates: start: 20040708, end: 20040718
  24. FIRSTCIN [Concomitant]
     Dosage: 1.5G Per day
     Route: 042
     Dates: start: 20040627, end: 20040628
  25. ADSORBIN [Concomitant]
     Dosage: 3G Per day
     Route: 048
     Dates: start: 20040718, end: 20040721
  26. TANNALBIN [Concomitant]
     Dosage: 3G Per day
     Route: 048
     Dates: start: 20040718, end: 20040721
  27. LAC-B [Concomitant]
     Dosage: 3G Per day
     Route: 048
     Dates: start: 20040718, end: 20040721
  28. CISPLATIN [Concomitant]
     Route: 065

REACTIONS (2)
  - Haemolytic uraemic syndrome [Recovered/Resolved]
  - Stomatitis [Recovered/Resolved]
